FAERS Safety Report 10156550 (Version 1)
Quarter: 2014Q2

REPORT INFORMATION
  Report Type: Spontaneous
  Country: US (occurrence: None)
  Receive Date: 20140506
  Receipt Date: 20140506
  Transmission Date: 20141212
  Serious: No
  Sender: FDA-Public Use
  Company Number: None

PATIENT
  Age: 51 Year
  Sex: Male
  Weight: 119.75 kg

DRUGS (8)
  1. SULFASALAZINE [Suspect]
     Indication: COLITIS ULCERATIVE
     Dosage: 500 MG TAB. ?100 PILLS IN BOTTLE-2 PILLS?X THREE DAILY?MOUTH
     Route: 048
     Dates: start: 20130924, end: 20140307
  2. LITHIUM [Concomitant]
  3. RITALIN [Concomitant]
  4. HYDROXAPINE [Concomitant]
  5. DOXAZOSIN [Concomitant]
  6. PANTOPRAZOLE [Concomitant]
  7. TYLENOL [Concomitant]
  8. EXCEDERINE MIGRAINE [Concomitant]

REACTIONS (13)
  - Pain [None]
  - Aortic arteriosclerosis [None]
  - Muscle spasms [None]
  - Arthralgia [None]
  - Chest pain [None]
  - Nausea [None]
  - Burning sensation [None]
  - Electric shock [None]
  - Nodule [None]
  - Tinnitus [None]
  - Visual impairment [None]
  - Arteriosclerosis coronary artery [None]
  - Lymphadenopathy [None]
